FAERS Safety Report 8021171-4 (Version None)
Quarter: 2012Q1

REPORT INFORMATION
  Report Type: 
  Country: None (occurrence: None)
  Receive Date: 20120104
  Receipt Date: 20111230
  Transmission Date: 20120608
  Serious: No
  Sender: FDA-Public Use
  Company Number: US-JNJFOC-20120100366

PATIENT
  Sex: Female
  Weight: 68.04 kg

DRUGS (3)
  1. PREDNISONE [Concomitant]
     Indication: JUVENILE ARTHRITIS
     Route: 065
  2. METHOTREXATE [Suspect]
     Indication: JUVENILE ARTHRITIS
     Route: 065
     Dates: start: 20090701
  3. REMICADE [Suspect]
     Indication: JUVENILE ARTHRITIS
     Route: 042
     Dates: start: 20110101

REACTIONS (3)
  - SCAB [None]
  - CONTUSION [None]
  - HERPES ZOSTER [None]
